FAERS Safety Report 19476524 (Version 5)
Quarter: 2021Q3

REPORT INFORMATION
  Report Type: Report from Study
  Country: CN (occurrence: CN)
  Receive Date: 20210630
  Receipt Date: 20210907
  Transmission Date: 20211014
  Serious: Yes (Hospitalization)
  Sender: FDA-Public Use
  Company Number: CN-ROCHE-2855105

PATIENT
  Age: 65 Year
  Sex: Female
  Weight: 64.3 kg

DRUGS (25)
  1. PERTUZUMAB. [Suspect]
     Active Substance: PERTUZUMAB
     Indication: HER2 POSITIVE BREAST CANCER
     Dosage: ON 27/MAY/2021 SHE RECEIVED THE MOST RECENT DOSE (840 MG) PRIOR TO AE.
     Route: 042
     Dates: start: 20210527, end: 20210614
  2. DOCETAXEL. [Suspect]
     Active Substance: DOCETAXEL
     Indication: HER2 POSITIVE BREAST CANCER
     Dosage: ON 27/MAY/2021 SHE RECEIVED MOST RECENT DOSE (130.5 MG) OF DOCETAXEL PRIOR TO AE.
     Route: 041
     Dates: start: 20210527, end: 20210614
  3. ERYTHROMYCIN. [Concomitant]
     Active Substance: ERYTHROMYCIN
     Indication: CONJUNCTIVITIS
     Route: 062
     Dates: start: 202105, end: 20210621
  4. DIPHENHYDRAMINE HYDROCHLORIDE. [Concomitant]
     Active Substance: DIPHENHYDRAMINE HYDROCHLORIDE
     Indication: HYPERSENSITIVITY
     Dates: start: 20210527, end: 20210527
  5. CIMETIDINE [Concomitant]
     Active Substance: CIMETIDINE
     Indication: VOMITING
     Dates: start: 20210527, end: 20210527
  6. INDOMETACIN [Concomitant]
     Active Substance: INDOMETHACIN
     Indication: MYALGIA
     Dates: start: 20210601
  7. LACTULOSE. [Concomitant]
     Active Substance: LACTULOSE
     Indication: CONSTIPATION
     Route: 048
     Dates: start: 20210616, end: 20210624
  8. DOCETAXEL. [Suspect]
     Active Substance: DOCETAXEL
     Route: 042
     Dates: start: 20210701
  9. TROPISETRON HYDROCHLORIDE [Concomitant]
     Active Substance: TROPISETRON HYDROCHLORIDE
     Indication: VOMITING
     Dates: start: 20210527, end: 20210527
  10. COMPOUND DEXAMETHASONE ACETATE [Concomitant]
     Indication: PRURITUS
     Dates: start: 20210610
  11. POTASSIUM CHLORIDE. [Concomitant]
     Active Substance: POTASSIUM CHLORIDE
     Indication: NUTRITIONAL SUPPLEMENTATION
     Route: 042
     Dates: start: 20210614, end: 20210615
  12. CYCLOPHOSPHAMIDE. [Suspect]
     Active Substance: CYCLOPHOSPHAMIDE
     Indication: HER2 POSITIVE BREAST CANCER
     Dosage: ON 08/MAY/2021, SHE RECEIVED THE MOST RECENT DOSE (1044 MG) OF CYCLOPHOSPHAMIDE PRIOR TO AE.
     Route: 042
     Dates: start: 20210303
  13. AMOXICILLIN. [Concomitant]
     Active Substance: AMOXICILLIN
  14. TRASTUZUMAB. [Suspect]
     Active Substance: TRASTUZUMAB
     Indication: HER2 POSITIVE BREAST CANCER
     Dosage: ON 27/MAY/2021 SHE RECEIVED THE MOST RECENT DOSE (568 MG) OF TRASTUZUMAB PRIOR TO AE.
     Route: 041
     Dates: start: 20210527, end: 20210614
  15. TRASTUZUMAB. [Suspect]
     Active Substance: TRASTUZUMAB
     Route: 042
     Dates: start: 20210701
  16. COMPOUND SODIUM SULFAMETHOXAZOLE EYE DROPS [Concomitant]
     Indication: CONJUNCTIVITIS
     Route: 050
     Dates: start: 20210507
  17. GLUTAMINE [Concomitant]
     Active Substance: GLUTAMINE
     Indication: NUTRITIONAL SUPPLEMENTATION
     Dates: start: 20210614, end: 20210615
  18. PERTUZUMAB. [Suspect]
     Active Substance: PERTUZUMAB
     Route: 042
     Dates: start: 20210701
  19. IBUPROFEN SUSTAINED RELEASE [Concomitant]
     Indication: MYALGIA
     Route: 048
     Dates: start: 20210601
  20. GLYCEROL [Concomitant]
     Active Substance: GLYCERIN
     Indication: CONSTIPATION
     Route: 067
     Dates: start: 20210614, end: 20210624
  21. COMPOUND AMINO ACID (18AA) [Concomitant]
     Active Substance: AMINO ACIDS, SOURCE UNSPECIFIED
     Indication: NUTRITIONAL SUPPLEMENTATION
     Dates: start: 20210614, end: 20210615
  22. DOXORUBICIN [Suspect]
     Active Substance: DOXORUBICIN
     Indication: HER2 POSITIVE BREAST CANCER
     Dosage: ON 08/MAY/2021, SHE RECEIVED THE MOST RECENT DOSE (104.4 MG) OF DOXORUBICIN PRIOR TO AE.
     Route: 042
     Dates: start: 20210303
  23. DOXORUBICIN [Suspect]
     Active Substance: DOXORUBICIN
     Dosage: ON 27/MAY/2021, SHE RECEIVED THE MOST RECENT DOSE (130.5 MG) OF DOXORUBICIN PRIOR TO AE.
     Route: 042
     Dates: start: 20210527
  24. VITAMIN C [Concomitant]
     Active Substance: ASCORBIC ACID
     Indication: NUTRITIONAL SUPPLEMENTATION
     Route: 042
     Dates: start: 20210614, end: 20210615
  25. VITAMIN B6 [Concomitant]
     Active Substance: PYRIDOXINE HYDROCHLORIDE
     Route: 042
     Dates: start: 20210614, end: 20210615

REACTIONS (1)
  - Ileus [Recovered/Resolved]

NARRATIVE: CASE EVENT DATE: 20210614
